FAERS Safety Report 11818839 (Version 2)
Quarter: 2016Q2

REPORT INFORMATION
  Report Type: Spontaneous
  Country: US (occurrence: US)
  Receive Date: 20151210
  Receipt Date: 20160608
  Transmission Date: 20160815
  Serious: No
  Sender: FDA-Public Use
  Company Number: US-JNJFOC-20151114926

PATIENT
  Sex: Male

DRUGS (16)
  1. RISPERDAL [Suspect]
     Active Substance: RISPERIDONE
     Indication: PSYCHOTIC DISORDER
     Route: 048
     Dates: start: 2012
  2. RISPERDAL [Suspect]
     Active Substance: RISPERIDONE
     Indication: DEPRESSION
     Route: 048
     Dates: start: 2012
  3. RISPERDAL [Suspect]
     Active Substance: RISPERIDONE
     Indication: DEPRESSION
     Route: 048
     Dates: start: 2011
  4. RISPERDAL [Suspect]
     Active Substance: RISPERIDONE
     Indication: PSYCHOTIC DISORDER
     Route: 048
     Dates: start: 2011
  5. RISPERDAL [Suspect]
     Active Substance: RISPERIDONE
     Indication: DEPRESSION
     Route: 048
     Dates: start: 2009
  6. RISPERDAL [Suspect]
     Active Substance: RISPERIDONE
     Indication: PSYCHOTIC DISORDER
     Route: 048
     Dates: end: 2013
  7. RISPERDAL [Suspect]
     Active Substance: RISPERIDONE
     Indication: IRRITABILITY
     Route: 048
     Dates: start: 2012
  8. RISPERDAL [Suspect]
     Active Substance: RISPERIDONE
     Indication: DEPRESSION
     Route: 048
     Dates: end: 2013
  9. RISPERDAL [Suspect]
     Active Substance: RISPERIDONE
     Indication: MOOD SWINGS
     Route: 048
     Dates: start: 2012
  10. RISPERDAL [Suspect]
     Active Substance: RISPERIDONE
     Indication: MOOD SWINGS
     Route: 048
     Dates: start: 2011
  11. RISPERDAL [Suspect]
     Active Substance: RISPERIDONE
     Indication: IRRITABILITY
     Route: 048
     Dates: start: 2011
  12. RISPERDAL [Suspect]
     Active Substance: RISPERIDONE
     Indication: IRRITABILITY
     Route: 048
     Dates: start: 2009
  13. RISPERDAL [Suspect]
     Active Substance: RISPERIDONE
     Indication: IRRITABILITY
     Route: 048
     Dates: end: 2013
  14. RISPERDAL [Suspect]
     Active Substance: RISPERIDONE
     Indication: MOOD SWINGS
     Route: 048
     Dates: end: 2013
  15. RISPERDAL [Suspect]
     Active Substance: RISPERIDONE
     Indication: PSYCHOTIC DISORDER
     Route: 048
     Dates: start: 2009
  16. RISPERDAL [Suspect]
     Active Substance: RISPERIDONE
     Indication: MOOD SWINGS
     Route: 048
     Dates: start: 2009

REACTIONS (4)
  - Product use issue [Unknown]
  - Off label use [Unknown]
  - Weight increased [Unknown]
  - Gynaecomastia [Unknown]

NARRATIVE: CASE EVENT DATE: 2009
